FAERS Safety Report 14126687 (Version 2)
Quarter: 2017Q4

REPORT INFORMATION
  Report Type: Report from Study
  Country: JP (occurrence: JP)
  Receive Date: 20171025
  Receipt Date: 20171218
  Transmission Date: 20180321
  Serious: Yes (Hospitalization)
  Sender: FDA-Public Use
  Company Number: JP-IPSEN BIOPHARMACEUTICALS, INC.-2017-01472

PATIENT
  Age: 67 Year
  Sex: Female

DRUGS (8)
  1. AIMIX [Concomitant]
     Active Substance: AMLODIPINE BESYLATE\IRBESARTAN
     Route: 048
     Dates: end: 20161107
  2. MICARDIS [Concomitant]
     Active Substance: TELMISARTAN
     Route: 048
     Dates: start: 20161108
  3. SANDOSTATIN [Suspect]
     Active Substance: OCTREOTIDE ACETATE
     Indication: ACROMEGALY
     Route: 030
     Dates: start: 20070806, end: 20140805
  4. NOVORAPID [Concomitant]
     Active Substance: INSULIN ASPART
     Route: 058
     Dates: end: 20160802
  5. RYZODEG 70/30 [Concomitant]
     Active Substance: INSULIN ASPART\INSULIN DEGLUDEC
     Dates: start: 20160802
  6. ONGLYZA [Concomitant]
     Active Substance: SAXAGLIPTIN HYDROCHLORIDE
     Route: 048
  7. SOMATULINE 120MG [Suspect]
     Active Substance: LANREOTIDE ACETATE
     Indication: ACROMEGALY
     Dosage: 120 MG
     Route: 058
     Dates: start: 20140902
  8. SOMAVERT [Suspect]
     Active Substance: PEGVISOMANT
     Indication: ACROMEGALY
     Dates: start: 20160530

REACTIONS (9)
  - Osteoarthritis [Recovered/Resolved]
  - Blood lactate dehydrogenase increased [Unknown]
  - Ventricular extrasystoles [Unknown]
  - Inappropriate schedule of drug administration [Unknown]
  - Bile duct stone [Recovering/Resolving]
  - Urine analysis abnormal [Recovered/Resolved]
  - Blood growth hormone increased [Not Recovered/Not Resolved]
  - Cholelithiasis [Recovering/Resolving]
  - Blood alkaline phosphatase increased [Not Recovered/Not Resolved]

NARRATIVE: CASE EVENT DATE: 20140902
